FAERS Safety Report 14378342 (Version 1)
Quarter: 2018Q1

REPORT INFORMATION
  Report Type: Report from Study
  Country: US (occurrence: US)
  Receive Date: 20180111
  Receipt Date: 20180111
  Transmission Date: 20180509
  Serious: Yes (Hospitalization)
  Sender: FDA-Public Use
  Company Number: US-ASTRAZENECA-2018SE02270

PATIENT
  Age: 74 Year
  Sex: Male
  Weight: 74.7 kg

DRUGS (2)
  1. OLAPARIB. [Suspect]
     Active Substance: OLAPARIB
     Indication: EWING^S SARCOMA RECURRENT
     Route: 048
     Dates: start: 20171208
  2. OLAPARIB. [Suspect]
     Active Substance: OLAPARIB
     Indication: EWING^S SARCOMA RECURRENT
     Route: 048
     Dates: start: 20171212

REACTIONS (1)
  - Hyponatraemia [Unknown]

NARRATIVE: CASE EVENT DATE: 20180103
